FAERS Safety Report 20373232 (Version 2)
Quarter: 2022Q1

REPORT INFORMATION
  Report Type: Report from Study
  Country: CO (occurrence: CO)
  Receive Date: 20220125
  Receipt Date: 20220209
  Transmission Date: 20220423
  Serious: Yes (Other)
  Sender: FDA-Public Use
  Company Number: CO-BAYER-2021A254331

PATIENT

DRUGS (1)
  1. EYLEA [Suspect]
     Active Substance: AFLIBERCEPT
     Indication: Diabetic retinal oedema
     Dosage: 40 MG/ML, 2 MG, 5 MONTHLY INJECTIONS, FOLLOWED BY 1 INJECTION EVERY 2 MONTHS FOR 1 YEAR

REACTIONS (1)
  - Pterygium [Recovered/Resolved]
